FAERS Safety Report 4912221-X (Version None)
Quarter: 2006Q1

REPORT INFORMATION
  Report Type: 
  Country: None (occurrence: None)
  Receive Date: 20060215
  Receipt Date: 20051021
  Transmission Date: 20060701
  Serious: No
  Sender: FDA-Public Use
  Company Number: US-GLAXOSMITHKLINE-A0579155A

PATIENT
  Age: 16 Year
  Sex: Female

DRUGS (3)
  1. VALTREX [Suspect]
     Dosage: 500MG PER DAY
     Route: 048
  2. PROZAC [Concomitant]
  3. SINGULAIR [Concomitant]

REACTIONS (1)
  - DRUG SCREEN POSITIVE [None]
